FAERS Safety Report 4732556-3 (Version None)
Quarter: 2005Q3

REPORT INFORMATION
  Report Type: 
  Country: None (occurrence: None)
  Receive Date: 20050801
  Receipt Date: 20050722
  Transmission Date: 20060218
  Serious: Yes (Death, Hospitalization)
  Sender: FDA-Public Use
  Company Number: 2005-06-0312

PATIENT
  Age: 73 Year
  Sex: Female

DRUGS (1)
  1. K-DUR 10 [Suspect]
     Dosage: 20 MEQ; ORAL
     Route: 048

REACTIONS (1)
  - ASTHMA [None]
